APPROVED DRUG PRODUCT: TOBRAMYCIN SULFATE
Active Ingredient: TOBRAMYCIN SULFATE
Strength: EQ 40MG BASE/ML
Dosage Form/Route: INJECTABLE;INJECTION
Application: A205179 | Product #001
Applicant: EPIC PHARMA LLC
Approved: Sep 16, 2014 | RLD: No | RS: No | Type: DISCN